FAERS Safety Report 18886112 (Version 1)
Quarter: 2021Q1

REPORT INFORMATION
  Report Type: Spontaneous
  Country: US (occurrence: US)
  Receive Date: 20210212
  Receipt Date: 20210212
  Transmission Date: 20210420
  Serious: No
  Sender: FDA-Public Use
  Company Number: US-009507513-1811USA006822

PATIENT
  Sex: Female

DRUGS (5)
  1. STERILE DILUENT (WATER) [Suspect]
     Active Substance: WATER
     Indication: MEDICATION DILUTION
     Dosage: UNK, ONCE
     Route: 058
     Dates: start: 20140808, end: 20140808
  2. HUMIRA [Concomitant]
     Active Substance: ADALIMUMAB
     Indication: RHEUMATOID ARTHRITIS
     Dosage: UNK
     Dates: start: 2015, end: 201906
  3. LITHIUM. [Concomitant]
     Active Substance: LITHIUM
     Indication: DEPRESSION
     Dosage: 300 MILLIGRAM, UNK
     Dates: start: 2009
  4. ZOSTAVAX [Suspect]
     Active Substance: VARICELLA-ZOSTER VIRUS STRAIN OKA/MERCK LIVE ANTIGEN
     Indication: PROPHYLAXIS
     Dosage: .65 MILLILITER
     Route: 058
     Dates: start: 20140808
  5. LEVOTHYROXINE SODIUM. [Concomitant]
     Active Substance: LEVOTHYROXINE SODIUM
     Indication: THYROID DISORDER
     Dosage: 2 MILLIGRAM, UNK
     Dates: start: 2000

REACTIONS (3)
  - Vaccination failure [Unknown]
  - Insomnia [Unknown]
  - Herpes zoster [Unknown]

NARRATIVE: CASE EVENT DATE: 201612
